FAERS Safety Report 16315815 (Version 1)
Quarter: 2019Q2

REPORT INFORMATION
  Report Type: Spontaneous
  Country: US (occurrence: US)
  Receive Date: 20190515
  Receipt Date: 20190515
  Transmission Date: 20190711
  Serious: No
  Sender: FDA-Public Use
  Company Number: US-RIGEL PHARMACEUTICALS, INC.-2019FOS000068

PATIENT

DRUGS (3)
  1. TAVALISSE [Suspect]
     Active Substance: FOSTAMATINIB
     Indication: IMMUNE THROMBOCYTOPENIC PURPURA
     Dosage: 150 MG, QD
  2. TAVALISSE [Suspect]
     Active Substance: FOSTAMATINIB
     Dosage: 150 MG, BID
  3. TAVALISSE [Suspect]
     Active Substance: FOSTAMATINIB
     Dosage: 1000 MG, BID
     Dates: start: 20180723

REACTIONS (5)
  - Platelet count decreased [Recovering/Resolving]
  - Weight decreased [Unknown]
  - Anxiety [Unknown]
  - Intentional product misuse [Unknown]
  - Diarrhoea [Unknown]
